FAERS Safety Report 5138611-0 (Version None)
Quarter: 2006Q4

REPORT INFORMATION
  Report Type: 
  Country: None (occurrence: None)
  Receive Date: 20061030
  Receipt Date: 20060515
  Transmission Date: 20070319
  Serious: Yes (Other)
  Sender: FDA-Public Use
  Company Number: GB-GLAXOSMITHKLINE-B0424896A

PATIENT
  Sex: Female

DRUGS (1)
  1. PAROXETINE HYDROCHLORIDE [Suspect]
     Route: 065

REACTIONS (6)
  - AFFECT LABILITY [None]
  - AGGRESSION [None]
  - DRUG WITHDRAWAL SYNDROME [None]
  - IMPULSIVE BEHAVIOUR [None]
  - LOGORRHOEA [None]
  - PERSONALITY CHANGE [None]
